FAERS Safety Report 4549562-4 (Version None)
Quarter: 2005Q1

REPORT INFORMATION
  Report Type: 
  Country: None (occurrence: None)
  Receive Date: 20050111
  Receipt Date: 20050103
  Transmission Date: 20050727
  Serious: Yes (Hospitalization, Other)
  Sender: FDA-Public Use
  Company Number: US-MERCK-0501USA00073

PATIENT
  Age: 85 Year
  Sex: Female

DRUGS (1)
  1. VIOXX [Suspect]
     Indication: RHEUMATOID ARTHRITIS
     Route: 048
     Dates: start: 19990101, end: 20040930

REACTIONS (4)
  - BREAST DISORDER [None]
  - BREAST OPERATION [None]
  - MYOCARDIAL INFARCTION [None]
  - THROMBOSIS [None]
